FAERS Safety Report 10045115 (Version 4)
Quarter: 2014Q4

REPORT INFORMATION
  Report Type: Spontaneous
  Country: BR (occurrence: BR)
  Receive Date: 20140328
  Receipt Date: 20141016
  Transmission Date: 20150528
  Serious: Yes (Hospitalization, Other)
  Sender: FDA-Public Use
  Company Number: BR-ABBVIE-14K-020-1215503-00

PATIENT
  Age: 39 Year
  Sex: Female
  Weight: 83 kg

DRUGS (4)
  1. METHOTREXATE [Concomitant]
     Active Substance: METHOTREXATE
     Indication: PRODUCT USED FOR UNKNOWN INDICATION
     Dates: start: 2012
  2. VIMOVO [Concomitant]
     Active Substance: ESOMEPRAZOLE MAGNESIUM\NAPROXEN
     Indication: ANTIINFLAMMATORY THERAPY
     Route: 048
     Dates: start: 20140101
  3. HUMIRA [Suspect]
     Active Substance: ADALIMUMAB
     Route: 058
     Dates: start: 201408
  4. HUMIRA [Suspect]
     Active Substance: ADALIMUMAB
     Indication: PSORIATIC ARTHROPATHY
     Route: 058
     Dates: start: 20140305, end: 20140320

REACTIONS (13)
  - Fatigue [Not Recovered/Not Resolved]
  - Nasal congestion [Not Recovered/Not Resolved]
  - Pain [Not Recovered/Not Resolved]
  - Abdominal pain upper [Not Recovered/Not Resolved]
  - Vomiting [Not Recovered/Not Resolved]
  - Coccydynia [Recovering/Resolving]
  - Arthralgia [Recovering/Resolving]
  - Immunodeficiency [Unknown]
  - Insomnia [Not Recovered/Not Resolved]
  - Ovarian mass [Not Recovered/Not Resolved]
  - Rheumatoid arthritis [Unknown]
  - Cough [Not Recovered/Not Resolved]
  - Back pain [Not Recovered/Not Resolved]

NARRATIVE: CASE EVENT DATE: 201403
